FAERS Safety Report 6936054-8 (Version None)
Quarter: 2010Q3

REPORT INFORMATION
  Report Type: 
  Country: None (occurrence: None)
  Receive Date: 20100817
  Receipt Date: 20100801
  Transmission Date: 20110219
  Serious: Yes (Hospitalization)
  Sender: FDA-Public Use
  Company Number: 017134

PATIENT
  Age: 73 Year
  Sex: Male

DRUGS (6)
  1. KEPPRA [Suspect]
     Dosage: 3000 MG
  2. ZONISAMIDE [Suspect]
     Dosage: 400 MG
  3. LORAZEPAM [Concomitant]
  4. VALPROIC ACID [Concomitant]
  5. PHENYTOIN [Concomitant]
  6. CARBAMAZEPAM [Concomitant]

REACTIONS (2)
  - PNEUMONIA [None]
  - STATUS EPILEPTICUS [None]
